FAERS Safety Report 15387958 (Version 1)
Quarter: 2018Q3

REPORT INFORMATION
  Report Type: Spontaneous
  Country: US (occurrence: US)
  Receive Date: 20180915
  Receipt Date: 20180915
  Transmission Date: 20181010
  Serious: No
  Sender: FDA-Public Use
  Company Number: US-JNJFOC-20180822905

PATIENT
  Sex: Female
  Weight: 58.97 kg

DRUGS (2)
  1. WOMENS ROGAINE UNSCENTED [Suspect]
     Active Substance: MINOXIDIL
     Indication: ALOPECIA
     Dosage: DOSE : HALF CAP
     Route: 061
     Dates: start: 2018, end: 20180814
  2. WOMENS ROGAINE UNSCENTED [Suspect]
     Active Substance: MINOXIDIL
     Indication: ALOPECIA
     Dosage: DOSE : HALF CAP
     Route: 061
     Dates: start: 20160816, end: 2018

REACTIONS (5)
  - Erythema [Recovering/Resolving]
  - Skin burning sensation [Recovering/Resolving]
  - Skin exfoliation [Recovering/Resolving]
  - Dry skin [Recovering/Resolving]
  - Pruritus [Recovering/Resolving]
